FAERS Safety Report 8511724-9 (Version None)
Quarter: 2012Q3

REPORT INFORMATION
  Report Type: 
  Country: None (occurrence: None)
  Receive Date: 20120716
  Receipt Date: 20120527
  Transmission Date: 20120928
  Serious: No
  Sender: FDA-Public Use
  Company Number: US-BAYER-2012-054443

PATIENT
  Age: 64 Year
  Sex: Male
  Weight: 77 kg

DRUGS (5)
  1. FISH OIL [Concomitant]
  2. ALEVE (CAPLET) [Suspect]
     Dosage: 2 DF, QD
     Route: 048
     Dates: start: 20090101, end: 20090101
  3. VITAMIN D [Concomitant]
  4. IBUPROFEN [Concomitant]
     Indication: PAIN
  5. ALEVE (CAPLET) [Suspect]
     Indication: ARTHROPATHY
     Route: 048

REACTIONS (1)
  - ARTHROPATHY [None]
